FAERS Safety Report 5004603-5 (Version None)
Quarter: 2006Q2

REPORT INFORMATION
  Report Type: 
  Country: None (occurrence: None)
  Receive Date: 20060516
  Receipt Date: 20060516
  Transmission Date: 20061013
  Serious: Yes (Hospitalization)
  Sender: FDA-Public Use
  Company Number: None

PATIENT
  Age: 13 Year
  Sex: Female
  Weight: 58.0604 kg

DRUGS (1)
  1. FLUOXETINE [Suspect]
     Indication: MAJOR DEPRESSION
     Dates: start: 20060428, end: 20060509

REACTIONS (3)
  - CONDITION AGGRAVATED [None]
  - INTENTIONAL SELF-INJURY [None]
  - SUICIDAL IDEATION [None]
